FAERS Safety Report 8372880-9 (Version None)
Quarter: 2012Q2

REPORT INFORMATION
  Report Type: 
  Country: None (occurrence: None)
  Receive Date: 20120521
  Receipt Date: 20120511
  Transmission Date: 20120825
  Serious: Yes (Other)
  Sender: FDA-Public Use
  Company Number: US-ASTRAZENECA-2012SE13370

PATIENT
  Age: 63 Year
  Sex: Female

DRUGS (2)
  1. PLAVIX [Concomitant]
  2. BRILINTA [Suspect]
     Route: 048

REACTIONS (3)
  - RENAL DISORDER [None]
  - LIVER INJURY [None]
  - MENTAL DISORDER [None]
